FAERS Safety Report 4931251-5 (Version None)
Quarter: 2006Q1

REPORT INFORMATION
  Report Type: 
  Country: None (occurrence: None)
  Receive Date: 20060302
  Receipt Date: 20060201
  Transmission Date: 20060701
  Serious: Yes (Hospitalization, Disabling)
  Sender: FDA-Public Use
  Company Number: US-MERCK-0602USA00237

PATIENT
  Age: 51 Year
  Sex: Male
  Weight: 95 kg

DRUGS (3)
  1. VIOXX [Suspect]
     Indication: ARTHRITIS
     Route: 048
     Dates: start: 20021108, end: 20041001
  2. VIOXX [Suspect]
     Route: 048
     Dates: start: 20021108, end: 20041001
  3. ALEVE [Concomitant]
     Route: 065

REACTIONS (5)
  - ANXIETY [None]
  - CEREBROVASCULAR ACCIDENT [None]
  - HYPOTHYROIDISM [None]
  - SLEEP DISORDER [None]
  - THYROID DISORDER [None]
